FAERS Safety Report 4995275-4 (Version None)
Quarter: 2006Q2

REPORT INFORMATION
  Report Type: 
  Country: None (occurrence: None)
  Receive Date: 20060503
  Receipt Date: 20060418
  Transmission Date: 20061013
  Serious: Yes (Death)
  Sender: FDA-Public Use
  Company Number: 2006S1002839

PATIENT
  Age: 53 Year
  Sex: Male

DRUGS (9)
  1. CLOZAPINE [Suspect]
     Dosage: 400 MG; HS; ORAL
     Route: 048
     Dates: start: 20031201, end: 20060201
  2. PARACETAMOL/HYDROCODONE BITARTRATE [Concomitant]
  3. PROPRANOLOL [Concomitant]
  4. ZIPRASIDONE HCL [Concomitant]
  5. ESCITALOPRAM OXALATE [Concomitant]
  6. BENAZEPRIL HYDROCHLORIDE [Concomitant]
  7. SIMVASTATIN [Concomitant]
  8. TOPIRAMATE [Concomitant]
  9. GLYCOPYRRONIUM BROMIDE [Concomitant]

REACTIONS (3)
  - ABDOMINAL OPERATION [None]
  - GRANULOCYTOPENIA [None]
  - POST PROCEDURAL COMPLICATION [None]
